FAERS Safety Report 18955963 (Version 1)
Quarter: 2021Q1

REPORT INFORMATION
  Report Type: Spontaneous
  Country: CN (occurrence: CN)
  Receive Date: 20210302
  Receipt Date: 20210302
  Transmission Date: 20210420
  Serious: Yes (Other)
  Sender: FDA-Public Use
  Company Number: CN-ROCHE-2778733

PATIENT
  Age: 60 Year
  Sex: Female

DRUGS (6)
  1. METHOTREXATE. [Concomitant]
     Active Substance: METHOTREXATE
     Dosage: ON DAY 1
     Dates: start: 20210109
  2. METHOTREXATE. [Concomitant]
     Active Substance: METHOTREXATE
     Indication: DIFFUSE LARGE B-CELL LYMPHOMA
     Dosage: ON DAY 1
     Dates: start: 20201028
  3. METHOTREXATE. [Concomitant]
     Active Substance: METHOTREXATE
     Dosage: ON DAY 1
     Dates: start: 20201121
  4. MABTHERA [Suspect]
     Active Substance: RITUXIMAB
     Indication: DIFFUSE LARGE B-CELL LYMPHOMA
     Dosage: ON DAY 0
     Route: 065
     Dates: start: 20201028
  5. METHOTREXATE. [Concomitant]
     Active Substance: METHOTREXATE
     Dosage: ON DAY 1
     Dates: start: 20201216
  6. TEMOZOLOMIDE. [Concomitant]
     Active Substance: TEMOZOLOMIDE
     Indication: DIFFUSE LARGE B-CELL LYMPHOMA
     Dosage: ON DAY 2?6
     Dates: start: 20201121

REACTIONS (2)
  - Subarachnoid haemorrhage [Unknown]
  - Cerebral haemorrhage [Recovering/Resolving]

NARRATIVE: CASE EVENT DATE: 20201117
